FAERS Safety Report 7625959-0 (Version None)
Quarter: 2011Q3

REPORT INFORMATION
  Report Type: 
  Country: None (occurrence: None)
  Receive Date: 20110721
  Receipt Date: 20110711
  Transmission Date: 20111222
  Serious: Yes (Hospitalization)
  Sender: FDA-Public Use
  Company Number: DE-ALLERGAN-1109319US

PATIENT
  Age: 80 Year
  Sex: Female

DRUGS (4)
  1. IODINE [Concomitant]
  2. OZURDEX [Suspect]
     Indication: MACULAR OEDEMA
     Dosage: 0.7 MG, SINGLE
     Route: 031
     Dates: start: 20110518, end: 20110518
  3. ISOPTO MAX [Concomitant]
  4. FLOXAL [Concomitant]

REACTIONS (1)
  - ENDOPHTHALMITIS [None]
